FAERS Safety Report 16659942 (Version 1)
Quarter: 2019Q3

REPORT INFORMATION
  Report Type: Spontaneous
  Country: NL (occurrence: NL)
  Receive Date: 20190802
  Receipt Date: 20190802
  Transmission Date: 20191004
  Serious: Yes (Other)
  Sender: FDA-Public Use
  Company Number: PHHY2019NL175717

PATIENT

DRUGS (3)
  1. METHYLPREDNISOLONE. [Suspect]
     Active Substance: METHYLPREDNISOLONE
     Indication: PRODUCT USED FOR UNKNOWN INDICATION
     Route: 065
  2. MITOMYCIN C [Suspect]
     Active Substance: MITOMYCIN
     Indication: BREAST CANCER
  3. MITOMYCIN C [Suspect]
     Active Substance: MITOMYCIN
     Indication: METASTASES TO LIVER
     Dosage: 12 MG MITOMYCIN C IN A 10 CC SALINE
     Route: 041

REACTIONS (1)
  - Thrombocytopenia [Unknown]
